FAERS Safety Report 24963500 (Version 1)
Quarter: 2025Q1

REPORT INFORMATION
  Report Type: Spontaneous
  Country: CA (occurrence: CA)
  Receive Date: 20250213
  Receipt Date: 20250213
  Transmission Date: 20250409
  Serious: Yes (Life-Threatening, Hospitalization)
  Sender: TEVA
  Company Number: CA-TEVA-VS-3297935

PATIENT
  Age: 4 Year
  Sex: Male

DRUGS (12)
  1. PREDNISOLONE [Suspect]
     Active Substance: PREDNISOLONE
     Indication: Angioedema
     Route: 065
  2. PREDNISOLONE [Suspect]
     Active Substance: PREDNISOLONE
     Indication: Rash pruritic
     Route: 048
  3. AMOXICILLIN TRIHYDRATE [Concomitant]
     Active Substance: AMOXICILLIN
     Indication: Otitis media
     Route: 065
  4. AMOXICILLIN TRIHYDRATE [Concomitant]
     Active Substance: AMOXICILLIN
     Indication: Otitis media
     Route: 065
  5. PREDNISONE [Concomitant]
     Active Substance: PREDNISONE
     Indication: Angioedema
     Route: 048
  6. EPINEPHRINE [Concomitant]
     Active Substance: EPINEPHRINE
     Indication: Serum sickness-like reaction
     Route: 030
  7. AMOXICILLIN [Suspect]
     Active Substance: AMOXICILLIN
     Indication: Otitis media
     Route: 065
  8. RUPATADINE [Suspect]
     Active Substance: RUPATADINE
     Indication: Rash pruritic
     Route: 048
  9. RUPATADINE [Suspect]
     Active Substance: RUPATADINE
     Indication: Rash pruritic
     Route: 065
  10. LACTATED RINGERS SOLUTION [Concomitant]
     Active Substance: CALCIUM CHLORIDE\POTASSIUM CHLORIDE\SODIUM CHLORIDE\SODIUM LACTATE
     Indication: Vehicle solution use
     Route: 042
  11. CETIRIZINE HYDROCHLORIDE [Suspect]
     Active Substance: CETIRIZINE HYDROCHLORIDE
     Indication: Angioedema
     Route: 048
  12. CETIRIZINE HYDROCHLORIDE [Suspect]
     Active Substance: CETIRIZINE HYDROCHLORIDE
     Indication: Angioedema
     Route: 065

REACTIONS (5)
  - Angioedema [Recovered/Resolved]
  - Disease progression [Recovered/Resolved]
  - Serum sickness-like reaction [Recovered/Resolved]
  - Drug ineffective [Recovered/Resolved]
  - Overdose [Recovered/Resolved]
